FAERS Safety Report 5062557-X (Version None)
Quarter: 2006Q3

REPORT INFORMATION
  Report Type: 
  Country: None (occurrence: None)
  Receive Date: 20060721
  Receipt Date: 20060622
  Transmission Date: 20061208
  Serious: Yes (Death)
  Sender: FDA-Public Use
  Company Number: CAO05001098

PATIENT
  Age: 75 Year
  Sex: Female
  Weight: 35.4 kg

DRUGS (4)
  1. PEPTO-BISMOL ORIGINAL FORMULA, ORIGINAL FLAVOR(BISMUTH SALICYLATE 262 [Suspect]
     Indication: STOMACH DISCOMFORT
     Dosage: 10 ML, 1 ONLY FOR 1 DAY, ORAL
     Route: 048
     Dates: start: 20051114, end: 20051114
  2. TRAZODONE HCL [Concomitant]
  3. NEBULIZER [Concomitant]
  4. INHALERS [Concomitant]

REACTIONS (16)
  - ACCIDENT [None]
  - AORTIC ARTERIOSCLEROSIS [None]
  - ARTERIOSCLEROSIS [None]
  - ASPHYXIA [None]
  - ASPIRATION [None]
  - BLOOD CHLORIDE INCREASED [None]
  - BLOOD POTASSIUM INCREASED [None]
  - BULLOUS LUNG DISEASE [None]
  - CORONARY ARTERY STENOSIS [None]
  - ECCHYMOSIS [None]
  - EXCORIATION [None]
  - FOREIGN BODY TRAUMA [None]
  - HEAD INJURY [None]
  - INCREASED BRONCHIAL SECRETION [None]
  - OBSTRUCTIVE AIRWAYS DISORDER [None]
  - SCAR [None]
